FAERS Safety Report 6590826-0 (Version None)
Quarter: 2010Q1

REPORT INFORMATION
  Report Type: 
  Country: None (occurrence: None)
  Receive Date: 20100205
  Receipt Date: 20100125
  Transmission Date: 20100710
  Serious: No
  Sender: FDA-Public Use
  Company Number: SPI201000025

PATIENT
  Age: 39 Year
  Sex: Female
  Weight: 74.8 kg

DRUGS (3)
  1. AMITIZA [Suspect]
     Indication: CONSTIPATION
     Dosage: 24 MCG, BID, ORAL
     Route: 048
     Dates: start: 20100116
  2. SYNTHROID [Concomitant]
  3. NEXIUM [Concomitant]

REACTIONS (7)
  - BODY TEMPERATURE INCREASED [None]
  - DYSPNOEA [None]
  - FLATULENCE [None]
  - GASTROINTESTINAL PAIN [None]
  - HEADACHE [None]
  - HOT FLUSH [None]
  - MIGRAINE [None]
